FAERS Safety Report 4546523-6 (Version None)
Quarter: 2005Q1

REPORT INFORMATION
  Report Type: 
  Country: None (occurrence: None)
  Receive Date: 20050106
  Receipt Date: 20041230
  Transmission Date: 20050727
  Serious: Yes (Other)
  Sender: FDA-Public Use
  Company Number: FR-GLAXOSMITHKLINE-B0363042A

PATIENT
  Age: 76 Year
  Sex: Female

DRUGS (5)
  1. ZELITREX [Suspect]
     Indication: HERPES SIMPLEX
     Dosage: 500MG SEE DOSAGE TEXT
     Route: 048
     Dates: start: 19980101, end: 20041201
  2. ENDOTELON [Concomitant]
     Indication: ANGIOPATHY
     Route: 048
  3. ALDACTAZINE [Concomitant]
     Indication: HYPERTENSION
     Route: 048
  4. LEVOTHYROX [Concomitant]
     Indication: HYPOTHYROIDISM
     Route: 048
  5. ZOLTUM [Concomitant]
     Indication: GASTROINTESTINAL DISORDER
     Route: 048

REACTIONS (2)
  - HAEMOGLOBIN DECREASED [None]
  - THROMBOCYTOPENIA [None]
